FAERS Safety Report 9172244 (Version 2)
Quarter: 2013Q2

REPORT INFORMATION
  Report Type: Spontaneous
  Country: US (occurrence: US)
  Receive Date: 20130319
  Receipt Date: 20130522
  Transmission Date: 20140414
  Serious: Yes (Hospitalization)
  Sender: FDA-Public Use
  Company Number: US-B.I. PHARMACEUTICALS,INC./RIDGEFIELD-2013-BI-06751BP

PATIENT
  Age: 93 Year
  Sex: Male
  Weight: 187 kg

DRUGS (3)
  1. PRADAXA [Suspect]
     Indication: ATRIAL FIBRILLATION
     Dosage: 150 MG
     Route: 048
     Dates: start: 201203, end: 201303
  2. MULTIPLE MEDICATIONS FOR CORONARY ARTERY DISEASE [Concomitant]
     Indication: CORONARY ARTERY DISEASE
  3. MULTIPLE MEDICATIONS FOR ATRIAL FIBRILLATION [Concomitant]
     Indication: ATRIAL FIBRILLATION

REACTIONS (1)
  - Diverticulum intestinal haemorrhagic [Recovered/Resolved]
